FAERS Safety Report 10068912 (Version 1)
Quarter: 2014Q2

REPORT INFORMATION
  Report Type: Spontaneous
  Country: BR (occurrence: BR)
  Receive Date: 20140409
  Receipt Date: 20140409
  Transmission Date: 20141212
  Serious: Yes (Hospitalization, Other)
  Sender: FDA-Public Use
  Company Number: BR-PFIZER INC-2014096326

PATIENT
  Age: 72 Year
  Sex: Female
  Weight: 62 kg

DRUGS (5)
  1. LIPITOR [Suspect]
     Indication: CARDIAC VALVE DISEASE
     Dosage: 20 MG, DAILY
     Dates: start: 2012, end: 2013
  2. CONCOR [Concomitant]
     Dosage: 2.5, 1 DF, DAILY
  3. DIACQUA [Concomitant]
     Dosage: 25 MG, DAILY
  4. ENALAPRIL [Concomitant]
     Dosage: 2 MG, DAILY
  5. OMEPRAZOL [Concomitant]
     Dosage: 20 MG, DAILY

REACTIONS (7)
  - Syncope [Unknown]
  - Feeling abnormal [Unknown]
  - Respiratory disorder [Unknown]
  - Ear discomfort [Unknown]
  - Small intestine polyp [Unknown]
  - Weight increased [Unknown]
  - Off label use [Unknown]
